FAERS Safety Report 7150896-8 (Version None)
Quarter: 2010Q4

REPORT INFORMATION
  Report Type: 
  Country: None (occurrence: None)
  Receive Date: 20101210
  Receipt Date: 20101130
  Transmission Date: 20110411
  Serious: Yes (Hospitalization)
  Sender: FDA-Public Use
  Company Number: PHHY2010US64256

PATIENT
  Sex: Male

DRUGS (4)
  1. GLEEVEC [Suspect]
     Indication: CHRONIC MYELOID LEUKAEMIA
     Dosage: 400 MG, QD
     Route: 048
     Dates: start: 20100507, end: 20100601
  2. GLEEVEC [Suspect]
     Dosage: UNK
     Dates: start: 20100716
  3. FLUDARABINE PHOSPHATE [Concomitant]
  4. CYTOXAN [Concomitant]

REACTIONS (2)
  - DISEASE PROGRESSION [None]
  - STEM CELL TRANSPLANT [None]
